FAERS Safety Report 4765647-1 (Version None)
Quarter: 2005Q3

REPORT INFORMATION
  Report Type: 
  Country: None (occurrence: None)
  Receive Date: 20050906
  Receipt Date: 20050819
  Transmission Date: 20060218
  Serious: Yes (Hospitalization, Other)
  Sender: FDA-Public Use
  Company Number: 430014M05DEU

PATIENT
  Age: 52 Year
  Sex: Female

DRUGS (1)
  1. RALENOVA (MITOXANTRONE HYDROCHLORIDE) [Suspect]
     Indication: MULTIPLE SCLEROSIS

REACTIONS (2)
  - HEPATIC ENZYME INCREASED [None]
  - JAUNDICE [None]
